FAERS Safety Report 6145769-3 (Version None)
Quarter: 2009Q2

REPORT INFORMATION
  Report Type: 
  Country: None (occurrence: None)
  Receive Date: 20090406
  Receipt Date: 20090406
  Transmission Date: 20091009
  Serious: Yes (Other)
  Sender: FDA-Public Use
  Company Number: None

PATIENT
  Sex: Female
  Weight: 67.1324 kg

DRUGS (1)
  1. QUINAPRIL [Suspect]
     Indication: BLOOD PRESSURE
     Dosage: 1 TAB AT BEDTIME 1 DAILY
     Dates: start: 20090303

REACTIONS (6)
  - ASTHENIA [None]
  - CHILLS [None]
  - CONFUSIONAL STATE [None]
  - FEELING ABNORMAL [None]
  - PARAESTHESIA [None]
  - TREMOR [None]
